FAERS Safety Report 24986350 (Version 1)
Quarter: 2025Q1

REPORT INFORMATION
  Report Type: Spontaneous
  Country: IN (occurrence: IN)
  Receive Date: 20250219
  Receipt Date: 20250219
  Transmission Date: 20250408
  Serious: Yes (Other)
  Sender: ASTELLAS
  Company Number: IN-ASTELLAS-2025-AER-009375

PATIENT
  Age: 46 Year
  Sex: Male

DRUGS (2)
  1. GILTERITINIB [Suspect]
     Active Substance: GILTERITINIB
     Indication: Product used for unknown indication
     Route: 065
     Dates: start: 2024
  2. GILTERITINIB [Suspect]
     Active Substance: GILTERITINIB
     Route: 065

REACTIONS (6)
  - Cytomegalovirus viraemia [Unknown]
  - Graft versus host disease in skin [Unknown]
  - Tuberculoma [Unknown]
  - Pulmonary granuloma [Unknown]
  - Klebsiella infection [Unknown]
  - Bacterial infection [Unknown]
